FAERS Safety Report 8342707-X (Version None)
Quarter: 2012Q2

REPORT INFORMATION
  Report Type: 
  Country: None (occurrence: None)
  Receive Date: 20120502
  Receipt Date: 20120423
  Transmission Date: 20120825
  Serious: Yes (Other)
  Sender: FDA-Public Use
  Company Number: 2012SP022195

PATIENT
  Age: 65 Year
  Sex: Female
  Weight: 95 kg

DRUGS (4)
  1. LANSOPRAZOLE [Concomitant]
  2. BENDROFLUMETHIAZIDE [Concomitant]
  3. PERINDOPRIL ERBUMINE [Concomitant]
  4. ROCURONIUM BROMIDE [Suspect]
     Indication: ANAESTHESIA
     Dosage: 90 MG;   ; IV
     Route: 042
     Dates: start: 20111011, end: 20111011

REACTIONS (2)
  - ANAPHYLACTIC SHOCK [None]
  - CARDIAC OUTPUT DECREASED [None]
